FAERS Safety Report 11873188 (Version 2)
Quarter: 2016Q1

REPORT INFORMATION
  Report Type: Report from Study
  Country: BR (occurrence: BR)
  Receive Date: 20151228
  Receipt Date: 20160328
  Transmission Date: 20160526
  Serious: Yes (Hospitalization, Other)
  Sender: FDA-Public Use
  Company Number: BR-ABBVIE-15K-020-1525368-00

PATIENT
  Age: 43 Year
  Sex: Female
  Weight: 48.5 kg

DRUGS (9)
  1. KETOPROFEN. [Concomitant]
     Active Substance: KETOPROFEN
     Indication: RHEUMATOID ARTHRITIS
     Route: 048
     Dates: start: 201506
  2. HUMIRA [Suspect]
     Active Substance: ADALIMUMAB
     Route: 058
  3. DEFLAZACORT [Concomitant]
     Active Substance: DEFLAZACORT
     Indication: RHEUMATOID ARTHRITIS
     Route: 048
     Dates: start: 201506
  4. FAMOTIDINE. [Concomitant]
     Active Substance: FAMOTIDINE
     Indication: RHEUMATOID ARTHRITIS
     Route: 048
     Dates: start: 201506
  5. AAS [Concomitant]
     Active Substance: ASPIRIN
     Indication: ANTICOAGULANT THERAPY
     Route: 048
     Dates: start: 2014
  6. PREDNISONE. [Concomitant]
     Active Substance: PREDNISONE
     Indication: RHEUMATOID ARTHRITIS
     Route: 048
     Dates: start: 201512
  7. LOSARTAN. [Concomitant]
     Active Substance: LOSARTAN
     Indication: HYPERTENSION
     Route: 048
  8. HYDROCHLOROTHIAZIDE. [Concomitant]
     Active Substance: HYDROCHLOROTHIAZIDE
     Indication: HYPERTENSION
     Route: 048
  9. HUMIRA [Suspect]
     Active Substance: ADALIMUMAB
     Indication: RHEUMATOID ARTHRITIS
     Route: 058
     Dates: start: 20130304

REACTIONS (15)
  - Dysarthria [Recovered/Resolved]
  - Blindness unilateral [Recovered/Resolved]
  - Chondropathy [Not Recovered/Not Resolved]
  - Venous occlusion [Unknown]
  - Fatigue [Unknown]
  - Asthenia [Not Recovered/Not Resolved]
  - Stroke in evolution [Recovered/Resolved]
  - Venous occlusion [Recovered/Resolved]
  - Weight decreased [Unknown]
  - Cerebrovascular accident [Recovered/Resolved]
  - Cerebrovascular accident [Recovered/Resolved with Sequelae]
  - Muscular weakness [Recovered/Resolved]
  - Dyskinesia [Recovered/Resolved]
  - Cerebrovascular accident [Recovered/Resolved]
  - Arterial occlusive disease [Unknown]

NARRATIVE: CASE EVENT DATE: 2014
